FAERS Safety Report 8855691 (Version 1)
Quarter: 2012Q4

REPORT INFORMATION
  Report Type: Spontaneous
  Country: US (occurrence: None)
  Receive Date: 20121019
  Receipt Date: 20121019
  Transmission Date: 20130627
  Serious: Yes (Hospitalization, Disabling, Other)
  Sender: FDA-Public Use
  Company Number: None

PATIENT
  Sex: Male
  Weight: 108.86 kg

DRUGS (4)
  1. LAMICTAL GLAXOSMITHKLINE [Suspect]
     Indication: BIPOLAR DEPRESSION
     Dates: start: 2001, end: 2010
  2. LAMICTAL GLAXOSMITHKLINE [Suspect]
     Dates: start: 2001, end: 2010
  3. LAMICTAL GLAXOSMITHKLINE [Suspect]
     Indication: BIPOLAR DEPRESSION
  4. LAMICTAL GLAXOSMITHKLINE [Suspect]

REACTIONS (1)
  - Drug prescribing error [None]
